FAERS Safety Report 4980503-1 (Version None)
Quarter: 2006Q2

REPORT INFORMATION
  Report Type: 
  Country: None (occurrence: None)
  Receive Date: 20060418
  Receipt Date: 20060406
  Transmission Date: 20061013
  Serious: Yes (Death, Hospitalization, Other)
  Sender: FDA-Public Use
  Company Number: 2005135105

PATIENT
  Age: 77 Year
  Sex: Male
  Weight: 74.8435 kg

DRUGS (3)
  1. NEURONTIN [Suspect]
     Indication: TRIGEMINAL NEURALGIA
     Dates: end: 20010501
  2. TEGRETOL [Suspect]
     Indication: ILL-DEFINED DISORDER
  3. VASOTEC [Suspect]
     Indication: ILL-DEFINED DISORDER

REACTIONS (25)
  - APHTHOUS STOMATITIS [None]
  - COMPLETED SUICIDE [None]
  - DISCOMFORT [None]
  - DISORDER OF GLOBE [None]
  - DISORDER OF ORBIT [None]
  - DISORIENTATION [None]
  - DIZZINESS POSTURAL [None]
  - DRUG INEFFECTIVE [None]
  - DRUG INTOLERANCE [None]
  - EYE DISORDER [None]
  - FACE INJURY [None]
  - FACIAL PAIN [None]
  - GUN SHOT WOUND [None]
  - HAEMORRHAGE [None]
  - HYPOTENSION [None]
  - INJURY [None]
  - INTENTIONAL SELF-INJURY [None]
  - MENTAL STATUS CHANGES [None]
  - NASAL DISORDER [None]
  - RESPIRATORY TRACT INFECTION [None]
  - SOFT TISSUE DISORDER [None]
  - SOMNOLENCE [None]
  - SYNCOPE [None]
  - TEMPOROMANDIBULAR JOINT SYNDROME [None]
  - TRIGEMINAL NEURALGIA [None]
